FAERS Safety Report 18879597 (Version 4)
Quarter: 2021Q1

REPORT INFORMATION
  Report Type: Report from Study
  Country: CN (occurrence: CN)
  Receive Date: 20210211
  Receipt Date: 20210325
  Transmission Date: 20210420
  Serious: Yes (Hospitalization)
  Sender: FDA-Public Use
  Company Number: CN-ROCHE-2749017

PATIENT
  Age: 59 Year
  Sex: Male
  Weight: 74 kg

DRUGS (11)
  1. PLACEBO [Suspect]
     Active Substance: UNSPECIFIED INGREDIENT
     Indication: NON-SMALL CELL LUNG CANCER STAGE IV
     Dosage: DATE OF THE MOST RECENT DOSE OF BLINDED ATEZOLIZUMAB PRIOR TO ADVERSE EVENT ONSET: 27/NOV/2020.
     Route: 041
     Dates: start: 20201013
  2. CARBOPLATIN. [Suspect]
     Active Substance: CARBOPLATIN
     Indication: NON-SMALL CELL LUNG CANCER STAGE IV
     Dosage: DATE OF MOST RECENT DOSE OF STUDY DRUG PRIOR TO SERIOUS ADVERSE EVENT 27/NOV/2020 750 MG
     Route: 042
     Dates: start: 20201013
  3. AMBROXOL HYDROCHLORIDE [Concomitant]
     Active Substance: AMBROXOL HYDROCHLORIDE
     Indication: PNEUMONIA
     Dates: start: 20201219, end: 20201221
  4. ESOMEPRAZOLE. [Concomitant]
     Active Substance: ESOMEPRAZOLE MAGNESIUM
     Indication: PNEUMONIA
     Dates: start: 20201221, end: 20201221
  5. PEMETREXED. [Suspect]
     Active Substance: PEMETREXED
     Indication: NON-SMALL CELL LUNG CANCER STAGE IV
     Dosage: DATE OF MOST RECENT DOSE OF STUDY DRUG PRIOR TO SERIOUS ADVERSE EVENT 27/NOV/2020 910 MG
     Route: 042
     Dates: start: 20201013
  6. FILGRASTIM [Concomitant]
     Active Substance: FILGRASTIM
     Indication: NEUTROPHIL COUNT DECREASED
  7. LEVOFLOXACIN. [Concomitant]
     Active Substance: LEVOFLOXACIN
     Indication: PNEUMONIA
     Dates: start: 20201221, end: 20201221
  8. DOMPERIDONE [Concomitant]
     Active Substance: DOMPERIDONE
     Indication: PROPHYLAXIS
     Dates: start: 20201221, end: 20201222
  9. BEVACIZUMAB. [Suspect]
     Active Substance: BEVACIZUMAB
     Indication: NON-SMALL CELL LUNG CANCER STAGE IV
     Dosage: DATE OF THE MOST RECENT DOSE OF BEVACIZUMAB (1095 MG) PRIOR TO SERIOUS ADVERSE EVENT ONSET: 27/NOV/2
     Route: 042
     Dates: start: 20201013
  10. FILGRASTIM [Concomitant]
     Active Substance: FILGRASTIM
     Indication: LEUKOPENIA
     Dates: start: 20201212, end: 20201213
  11. RECOMBINANT HUMAN INTERLEUKIN (UNK INGREDIENTS) [Concomitant]
     Indication: THROMBOCYTOPENIA
     Dates: start: 20201212, end: 20201213

REACTIONS (1)
  - Dyspnoea [Not Recovered/Not Resolved]

NARRATIVE: CASE EVENT DATE: 20210109
